FAERS Safety Report 10062127 (Version 1)
Quarter: 2014Q2

REPORT INFORMATION
  Report Type: Spontaneous
  Country: US (occurrence: None)
  Receive Date: 20140404
  Receipt Date: 20140404
  Transmission Date: 20141212
  Serious: Yes (Other)
  Sender: FDA-Public Use
  Company Number: None

PATIENT
  Age: 63 Year
  Sex: Female

DRUGS (1)
  1. TOPIRAMATE [Suspect]
     Dosage: 1 QD ORAL
     Route: 048
     Dates: start: 20140317, end: 20140403

REACTIONS (4)
  - Nausea [None]
  - Diarrhoea [None]
  - Faeces discoloured [None]
  - Product quality issue [None]
